FAERS Safety Report 9479337 (Version 4)
Quarter: 2013Q4

REPORT INFORMATION
  Report Type: Spontaneous
  Country: DK (occurrence: DK)
  Receive Date: 20130827
  Receipt Date: 20131127
  Transmission Date: 20140711
  Serious: Yes (Disabling, Other)
  Sender: FDA-Public Use
  Company Number: PHHY2013DK090850

PATIENT
  Age: 67 Year
  Sex: Female

DRUGS (10)
  1. EBETREXAT [Suspect]
     Indication: RHEUMATOID ARTHRITIS
     Dates: start: 20100318
  2. METHOTREXATE [Suspect]
     Indication: RHEUMATOID ARTHRITIS
     Dosage: 10 MG, QW
     Dates: start: 20090525, end: 20100318
  3. METHOTREXATE [Suspect]
     Dosage: 15 MG, QW
  4. METHOTREXATE [Suspect]
     Dosage: 17.5 MG, UNK
  5. METHOTREXATE [Suspect]
     Dosage: 20 MG, UNK
     Dates: start: 20090708
  6. METHOTREXATE [Suspect]
     Dosage: 25 MG, UNK
     Dates: start: 20090916
  7. METEX [Suspect]
     Indication: RHEUMATOID ARTHRITIS
     Dosage: 10 MG, QW, DOSE BE REDUCED TO 10 MG PER WEEK
     Dates: start: 2012, end: 20120717
  8. HUMIRA [Concomitant]
     Indication: RHEUMATOID ARTHRITIS
     Dosage: 40 MG, EVERY SECOND WEEK
     Dates: start: 20100901, end: 20120106
  9. ENBREL [Concomitant]
     Indication: RHEUMATOID ARTHRITIS
     Dates: start: 201202, end: 20120703
  10. ORENCIA [Concomitant]
     Indication: RHEUMATOID ARTHRITIS
     Dates: start: 20120703

REACTIONS (9)
  - Lung disorder [Unknown]
  - Pneumonia [Unknown]
  - Pulmonary function test decreased [Not Recovered/Not Resolved]
  - Pneumonitis [Unknown]
  - Insomnia [Recovered/Resolved]
  - Lung infiltration [Recovering/Resolving]
  - Cough [Recovered/Resolved]
  - Dyspnoea [Not Recovered/Not Resolved]
  - Alopecia [Unknown]
